FAERS Safety Report 19896148 (Version 7)
Quarter: 2022Q4

REPORT INFORMATION
  Report Type: Report from Study
  Country: US (occurrence: US)
  Receive Date: 20210929
  Receipt Date: 20221128
  Transmission Date: 20230113
  Serious: Yes (Hospitalization, Other)
  Sender: FDA-Public Use
  Company Number: US-NOVARTISTESTPH-NVSC2021US221255

PATIENT
  Sex: Female

DRUGS (2)
  1. ENTRESTO [Suspect]
     Active Substance: SACUBITRIL\VALSARTAN
     Indication: Product used for unknown indication
     Dosage: 1 DF, BID  (49/51 MG)
     Route: 048
  2. ENTRESTO [Suspect]
     Active Substance: SACUBITRIL\VALSARTAN
     Dosage: 0.5 DF (49/51 MG)
     Route: 048

REACTIONS (11)
  - Nausea [Unknown]
  - Blood pressure abnormal [Unknown]
  - Cerebrovascular accident [Unknown]
  - Hypoacusis [Unknown]
  - Increased appetite [Unknown]
  - Asthenia [Unknown]
  - Fatigue [Unknown]
  - Muscle strain [Unknown]
  - Throat clearing [Unknown]
  - Cough [Unknown]
  - Wrong technique in product usage process [Unknown]
